FAERS Safety Report 7151844-7 (Version None)
Quarter: 2010Q4

REPORT INFORMATION
  Report Type: 
  Country: None (occurrence: None)
  Receive Date: 20101210
  Receipt Date: 20101201
  Transmission Date: 20110411
  Serious: Yes (Hospitalization)
  Sender: FDA-Public Use
  Company Number: BE-ABBOTT-10P-013-0688722-00

PATIENT
  Sex: Female

DRUGS (14)
  1. HUMIRA [Suspect]
     Indication: RHEUMATOID ARTHRITIS
     Dates: end: 20100920
  2. HUMIRA [Suspect]
     Dates: start: 20100929
  3. ARAVA [Concomitant]
     Indication: RHEUMATOID ARTHRITIS
     Dates: start: 20060901
  4. MEDROL [Concomitant]
     Indication: RHEUMATOID ARTHRITIS
     Dates: start: 20000614
  5. OMEPRAZOLE [Concomitant]
     Indication: ABDOMINAL PAIN UPPER
     Dates: start: 19990301
  6. ESTREVA [Concomitant]
     Indication: MENOPAUSE
     Dates: start: 20030131
  7. D-CURE [Concomitant]
     Indication: VITAMIN D DECREASED
     Dates: start: 19990101
  8. SIMVASTATIN [Concomitant]
     Indication: HYPERCHOLESTEROLAEMIA
     Dates: start: 20080301
  9. EUTHYROX [Concomitant]
     Indication: HYPOTHYROIDISM
     Dosage: 50 MCG DAILY
  10. BIOFENAC [Concomitant]
     Indication: PRODUCT USED FOR UNKNOWN INDICATION
     Dates: end: 20100701
  11. DIURETICS [Concomitant]
     Indication: PRODUCT USED FOR UNKNOWN INDICATION
     Dates: end: 20100701
  12. CONTRAMAL RETARD [Concomitant]
     Indication: PRODUCT USED FOR UNKNOWN INDICATION
  13. CACIT 500 [Concomitant]
     Indication: CALCIUM DEFICIENCY
  14. COVERSYL [Concomitant]
     Indication: PRODUCT USED FOR UNKNOWN INDICATION
     Dates: end: 20100701

REACTIONS (1)
  - LYMPHOEDEMA [None]
